FAERS Safety Report 10508512 (Version 4)
Quarter: 2014Q4

REPORT INFORMATION
  Report Type: Spontaneous
  Country: US (occurrence: None)
  Receive Date: 20141007
  Receipt Date: 20141205
  Transmission Date: 20150528
  Serious: Yes (Hospitalization)
  Sender: FDA-Public Use
  Company Number: 2014045397

PATIENT
  Age: 15 Year
  Sex: Female

DRUGS (3)
  1. STIMATE [Suspect]
     Active Substance: DESMOPRESSIN ACETATE
     Indication: HAEMORRHAGE
     Dosage: DAILY AS NEEDED NASAL
     Route: 045
     Dates: start: 20140919
  2. HUMATE-P (FACTOR VIII (ANTIHAEMOPHILIC FACTOR)) [Concomitant]
  3. STIMATE [Suspect]
     Active Substance: DESMOPRESSIN ACETATE
     Indication: VON WILLEBRAND^S DISEASE
     Dosage: DAILY AS NEEDED NASAL
     Route: 045
     Dates: start: 20140919

REACTIONS (1)
  - Meniscus operation [None]

NARRATIVE: CASE EVENT DATE: 20140919
